FAERS Safety Report 17364331 (Version 1)
Quarter: 2020Q1

REPORT INFORMATION
  Report Type: Spontaneous
  Country: JP (occurrence: JP)
  Receive Date: 20200204
  Receipt Date: 20200204
  Transmission Date: 20200409
  Serious: Yes (Death, Hospitalization)
  Sender: FDA-Public Use
  Company Number: JP-TEVA-2020-JP-1178784

PATIENT
  Age: 82 Year
  Sex: Female

DRUGS (5)
  1. CYCLOSPORINE. [Suspect]
     Active Substance: CYCLOSPORINE
     Indication: STILL^S DISEASE
     Dosage: 200 MILLIGRAM DAILY;
     Route: 048
  2. TOCILIZUMAB. [Suspect]
     Active Substance: TOCILIZUMAB
     Indication: STILL^S DISEASE
     Dosage: 400 MILLIGRAM DAILY; 400MG = 8MG/KG
     Route: 042
  3. LIPOSOMAL AMPHOTERICIN B [Suspect]
     Active Substance: AMPHOTERICIN B
     Indication: MUCORMYCOSIS
     Dosage: 200 MILLIGRAM DAILY; 200MG/DAY = 5MG/KG/DAY
  4. METHYLPREDNISOLONE. [Suspect]
     Active Substance: METHYLPREDNISOLONE
     Indication: STILL^S DISEASE
     Dosage: 1 GRAM DAILY;
     Route: 065
  5. PREDNISOLONE. [Suspect]
     Active Substance: PREDNISOLONE
     Indication: STILL^S DISEASE
     Dosage: 50 MILLIGRAM DAILY;
     Route: 048

REACTIONS (5)
  - Gastrointestinal mucormycosis [Unknown]
  - Drug ineffective [Unknown]
  - Pneumothorax [Recovering/Resolving]
  - Pneumonia cytomegaloviral [Fatal]
  - Gastropleural fistula [Fatal]
